FAERS Safety Report 24353637 (Version 1)
Quarter: 2024Q3

REPORT INFORMATION
  Report Type: Spontaneous
  Country: US (occurrence: US)
  Receive Date: 20240923
  Receipt Date: 20240923
  Transmission Date: 20241016
  Serious: No
  Sender: PAREXEL
  Company Number: US-Stemline Therapeutics, Inc.-2024ST000801

PATIENT

DRUGS (1)
  1. ORSERDU [Suspect]
     Active Substance: ELACESTRANT
     Indication: Product used for unknown indication
     Dates: start: 20240206

REACTIONS (11)
  - Product use complaint [Unknown]
  - Appetite disorder [Unknown]
  - Sinusitis [Unknown]
  - Chills [Recovered/Resolved]
  - Emotional disorder [Unknown]
  - Irritability [Unknown]
  - Depression [Unknown]
  - Depressed mood [Unknown]
  - Crying [Unknown]
  - Nausea [Not Recovered/Not Resolved]
  - Fatigue [Unknown]
